FAERS Safety Report 25139807 (Version 1)
Quarter: 2025Q1

REPORT INFORMATION
  Report Type: Report from Study
  Country: US (occurrence: US)
  Receive Date: 20250331
  Receipt Date: 20250331
  Transmission Date: 20250409
  Serious: No
  Sender: ACADIA PHARMACEUTICALS
  Company Number: US-ACADIA PHARMACEUTICALS INC.-ACA-2025-PIM-003352

PATIENT
  Sex: Male

DRUGS (11)
  1. NUPLAZID [Suspect]
     Active Substance: PIMAVANSERIN TARTRATE
     Indication: Parkinson^s disease
     Dosage: 34 MILLIGRAM, QD
     Route: 048
     Dates: start: 20210910
  2. ATROPINE SULFATE [Concomitant]
     Active Substance: ATROPINE SULFATE
  3. VITAMIN B COMPLEX [Concomitant]
     Active Substance: CYANOCOBALAMIN\DEXPANTHENOL\NIACINAMIDE\PYRIDOXINE HYDROCHLORIDE\RIBOFLAVIN 5^-PHOSPHATE SODIUM\THIA
  4. CARBIDOPA [Concomitant]
     Active Substance: CARBIDOPA
  5. DUTASTERIDE [Concomitant]
     Active Substance: DUTASTERIDE
  6. ELIQUIS [Concomitant]
     Active Substance: APIXABAN
  7. LEVODOPA [Concomitant]
     Active Substance: LEVODOPA
  8. MEMANTINE [Concomitant]
     Active Substance: MEMANTINE
  9. MODAFINIL [Concomitant]
     Active Substance: MODAFINIL
  10. PRAMIPEXOLE [Concomitant]
     Active Substance: PRAMIPEXOLE
  11. VITAMIN D3 [Concomitant]
     Active Substance: CHOLECALCIFEROL

REACTIONS (1)
  - Condition aggravated [Unknown]
